FAERS Safety Report 4437227-9 (Version None)
Quarter: 2004Q3

REPORT INFORMATION
  Report Type: 
  Country: None (occurrence: None)
  Receive Date: 20040726
  Receipt Date: 20040302
  Transmission Date: 20050211
  Serious: No
  Sender: FDA-Public Use
  Company Number: USA040360758

PATIENT
  Age: 50 Year
  Sex: Female
  Weight: 70 kg

DRUGS (4)
  1. FORTEO [Suspect]
     Indication: OSTEOPOROSIS
     Dates: start: 20040209
  2. HYDROCHLOROTHIAZIDE [Concomitant]
  3. CONTRACEPTIVE PILL (ORAL CONTRACEPTIVE NOS) [Concomitant]
  4. TYLENOL [Concomitant]

REACTIONS (3)
  - ASTHENOPIA [None]
  - FATIGUE [None]
  - SLUGGISHNESS [None]
